FAERS Safety Report 6530683-1 (Version None)
Quarter: 2010Q1

REPORT INFORMATION
  Report Type: 
  Country: None (occurrence: None)
  Receive Date: 20100108
  Receipt Date: 20090220
  Transmission Date: 20100710
  Serious: No
  Sender: FDA-Public Use
  Company Number: A0757621A

PATIENT
  Age: 56 Year
  Sex: Male

DRUGS (6)
  1. LOVAZA [Suspect]
     Dosage: 2G TWICE PER DAY
     Route: 048
     Dates: start: 20070101, end: 20081120
  2. COZAAR [Concomitant]
  3. LIPITOR [Concomitant]
  4. PLAVIX [Concomitant]
  5. JANUVIA [Concomitant]
  6. INSULIN [Concomitant]

REACTIONS (3)
  - CHEST PAIN [None]
  - DYSPNOEA [None]
  - PRODUCT QUALITY ISSUE [None]
